FAERS Safety Report 6926079-0 (Version None)
Quarter: 2010Q3

REPORT INFORMATION
  Report Type: 
  Country: None (occurrence: None)
  Receive Date: 20100816
  Receipt Date: 20100811
  Transmission Date: 20110219
  Serious: Yes (Hospitalization)
  Sender: FDA-Public Use
  Company Number: US-BRISTOL-MYERS SQUIBB COMPANY-15235930

PATIENT
  Age: 17 Year
  Sex: Female

DRUGS (2)
  1. ABILIFY [Suspect]
     Dates: start: 20090101
  2. CELEXA [Concomitant]

REACTIONS (3)
  - COMA [None]
  - HYPEROSMOLAR STATE [None]
  - KETOACIDOSIS [None]
